FAERS Safety Report 5292458-3 (Version None)
Quarter: 2007Q2

REPORT INFORMATION
  Report Type: 
  Country: None (occurrence: None)
  Receive Date: 20070410
  Receipt Date: 20070329
  Transmission Date: 20071010
  Serious: Yes (Hospitalization, Other)
  Sender: FDA-Public Use
  Company Number: JP-PFIZER INC-2007012320

PATIENT
  Sex: Male
  Weight: 39 kg

DRUGS (12)
  1. ZYVOX [Suspect]
     Indication: STAPHYLOCOCCAL SEPSIS
     Route: 048
     Dates: start: 20070125, end: 20070207
  2. ALL OTHER THERAPEUTIC PRODUCTS [Concomitant]
     Indication: PRURITUS
     Route: 048
  3. ALLOPURINOL [Concomitant]
     Indication: HYPERURICAEMIA
     Route: 048
  4. URSO [Concomitant]
     Indication: CHOLELITHIASIS
     Route: 048
  5. CYANOCOBALAMIN [Concomitant]
     Indication: NEUROPATHY PERIPHERAL
     Route: 048
  6. PURSENNID [Concomitant]
     Indication: CONSTIPATION
     Route: 048
  7. LASIX [Concomitant]
     Indication: OEDEMA DUE TO RENAL DISEASE
     Route: 048
  8. PERSANTIN [Concomitant]
     Indication: NEPHROTIC SYNDROME
     Route: 048
  9. CELTECT [Concomitant]
     Indication: PRURITUS
     Route: 048
  10. ALESION [Concomitant]
     Indication: PRURITUS
     Route: 048
  11. POSTERISAN FORTE [Concomitant]
  12. TANKARU [Concomitant]
     Indication: HYPOCALCAEMIA
     Route: 048

REACTIONS (2)
  - HALLUCINATION [None]
  - PLATELET COUNT DECREASED [None]
